FAERS Safety Report 21916101 (Version 1)
Quarter: 2023Q1

REPORT INFORMATION
  Report Type: Spontaneous
  Country: US (occurrence: US)
  Receive Date: 20230126
  Receipt Date: 20230126
  Transmission Date: 20230417
  Serious: No
  Sender: FDA-Public Use
  Company Number: US-drreddys-SPO/USA/23/0159473

PATIENT
  Age: 42 Year
  Sex: Female

DRUGS (1)
  1. ACCUTANE [Suspect]
     Active Substance: ISOTRETINOIN
     Indication: Acne
     Dosage: RMA ISSUE DATE?30 NOVEMBER 2022 09:12:53 AM, 31 OCTOBER 2022 11:19:41 AM, 27 SEPTEMBER 2022 08:49:30

REACTIONS (3)
  - Eye swelling [Recovered/Resolved]
  - Visual impairment [Recovered/Resolved]
  - Dyspepsia [Recovered/Resolved]
